FAERS Safety Report 16206563 (Version 1)
Quarter: 2019Q2

REPORT INFORMATION
  Report Type: Report from Study
  Country: CA (occurrence: CA)
  Receive Date: 20190417
  Receipt Date: 20190417
  Transmission Date: 20190711
  Serious: Yes (Hospitalization, Other)
  Sender: FDA-Public Use
  Company Number: CA-AMGEN-CANSP2014035542

PATIENT
  Age: 92 Year
  Sex: Female

DRUGS (17)
  1. TEVA VALSARTAN [Concomitant]
     Active Substance: VALSARTAN
     Dosage: UNK
  2. CALTRATE [Concomitant]
     Active Substance: CALCIUM CARBONATE
  3. OMEPRAZOLE. [Concomitant]
     Active Substance: OMEPRAZOLE
     Indication: GASTROOESOPHAGEAL REFLUX DISEASE
     Dosage: UNK
  4. SINGULAIR [Concomitant]
     Active Substance: MONTELUKAST SODIUM
     Indication: RESPIRATION ABNORMAL
     Dosage: UNK
     Route: 065
  5. TRAVATAN [Concomitant]
     Active Substance: TRAVOPROST
     Indication: GLAUCOMA
     Dosage: UNK
     Route: 065
  6. JUBLIA [Concomitant]
     Active Substance: EFINACONAZOLE
     Indication: ONYCHOMYCOSIS
     Dosage: UNK
  7. CRESTOR [Concomitant]
     Active Substance: ROSUVASTATIN CALCIUM
     Indication: BLOOD CHOLESTEROL INCREASED
     Dosage: 10 MG, UNK
  8. METOCLOPRAMIDE. [Concomitant]
     Active Substance: METOCLOPRAMIDE
     Dosage: UNK
  9. SOFLAX [Concomitant]
     Active Substance: DOCUSATE
     Dosage: UNK
     Route: 065
  10. PROLIA [Suspect]
     Active Substance: DENOSUMAB
     Indication: OSTEOPOROSIS POSTMENOPAUSAL
     Dosage: 60 MG/ML, Q6MO
     Route: 058
     Dates: start: 20120424
  11. SYMBICORT [Concomitant]
     Active Substance: BUDESONIDE\FORMOTEROL FUMARATE DIHYDRATE
     Dosage: UNK
  12. CALCIUM [Concomitant]
     Active Substance: CALCIUM
     Dosage: UNK
     Route: 065
  13. VALSARTAN. [Concomitant]
     Active Substance: VALSARTAN
     Indication: BLOOD PRESSURE ABNORMAL
     Dosage: UNK
     Route: 065
  14. ASA [Concomitant]
     Active Substance: ASPIRIN
     Dosage: 81 MG, UNK
     Route: 065
  15. CENTRUM CARDIO [Concomitant]
     Active Substance: VITAMINS
  16. TYLENOL [Concomitant]
     Active Substance: ACETAMINOPHEN
     Dosage: UNK
     Route: 065
  17. ELIDEL [Concomitant]
     Active Substance: PIMECROLIMUS
     Indication: PRURITUS

REACTIONS (10)
  - Urticaria [Recovered/Resolved]
  - Dizziness [Not Recovered/Not Resolved]
  - Syncope [Unknown]
  - Rash [Not Recovered/Not Resolved]
  - Pain in extremity [Unknown]
  - Alopecia [Not Recovered/Not Resolved]
  - Arthritis [Unknown]
  - Gait inability [Unknown]
  - Pruritus generalised [Not Recovered/Not Resolved]
  - Fall [Unknown]

NARRATIVE: CASE EVENT DATE: 201212
